FAERS Safety Report 11708280 (Version 1)
Quarter: 2015Q4

REPORT INFORMATION
  Report Type: Report from Study
  Country: BR (occurrence: BR)
  Receive Date: 20151107
  Receipt Date: 20151107
  Transmission Date: 20160304
  Serious: Yes (Other)
  Sender: FDA-Public Use
  Company Number: PHHY2015BR143777

PATIENT
  Age: 68 Year
  Sex: Female
  Weight: 70 kg

DRUGS (1)
  1. ACLASTA [Suspect]
     Active Substance: ZOLEDRONIC ACID
     Indication: OSTEOPOROSIS
     Dosage: 5 MG, Q12MO
     Route: 042

REACTIONS (18)
  - Eye swelling [Recovered/Resolved]
  - Mouth swelling [Recovered/Resolved]
  - Onychoclasis [Recovering/Resolving]
  - Malaise [Recovering/Resolving]
  - Diplopia [Recovered/Resolved]
  - Visual acuity reduced [Unknown]
  - Asthenia [Recovering/Resolving]
  - Decreased appetite [Recovering/Resolving]
  - Back pain [Unknown]
  - Dengue fever [Recovering/Resolving]
  - Body height decreased [Unknown]
  - Nausea [Recovering/Resolving]
  - Swelling face [Recovered/Resolved]
  - Eye allergy [Recovered/Resolved]
  - Inappropriate schedule of drug administration [Unknown]
  - Gastric infection [Recovering/Resolving]
  - Hypersensitivity [Unknown]
  - Alopecia [Recovering/Resolving]

NARRATIVE: CASE EVENT DATE: 201503
